FAERS Safety Report 10175053 (Version 2)
Quarter: 2014Q2

REPORT INFORMATION
  Report Type: Spontaneous
  Country: DE (occurrence: DE)
  Receive Date: 20140515
  Receipt Date: 20140617
  Transmission Date: 20141212
  Serious: Yes (Death, Hospitalization)
  Sender: FDA-Public Use
  Company Number: DE-ELI_LILLY_AND_COMPANY-DE201405002609

PATIENT
  Age: 71 Year
  Sex: Male
  Weight: 67 kg

DRUGS (3)
  1. EFIENT [Suspect]
     Indication: STENT PLACEMENT
     Dosage: 60 MG, SINGLE
     Dates: start: 20101121, end: 20101124
  2. EFIENT [Suspect]
     Dosage: 10 MG, QD
     Dates: start: 20101125
  3. ASPIRIN [Concomitant]
     Dosage: 100 MG, QD

REACTIONS (4)
  - Sepsis [Fatal]
  - Multi-organ failure [Fatal]
  - Malignant peritoneal neoplasm [Unknown]
  - Shock haemorrhagic [Unknown]
